FAERS Safety Report 25282861 (Version 1)
Quarter: 2025Q2

REPORT INFORMATION
  Report Type: Spontaneous
  Country: CN (occurrence: CN)
  Receive Date: 20250508
  Receipt Date: 20250508
  Transmission Date: 20250716
  Serious: Yes (Hospitalization)
  Sender: ROCHE
  Company Number: CN-BoehringerIngelheim-2025-BI-024917

PATIENT
  Age: 79 Year
  Sex: Male
  Weight: 57 kg

DRUGS (1)
  1. ALTEPLASE [Suspect]
     Active Substance: ALTEPLASE
     Indication: Thrombolysis
     Route: 042
     Dates: start: 20250418, end: 20250418

REACTIONS (2)
  - Brain stem haemorrhage [Not Recovered/Not Resolved]
  - Pneumonitis aspiration [Not Recovered/Not Resolved]

NARRATIVE: CASE EVENT DATE: 20250418
